FAERS Safety Report 6807773-9 (Version None)
Quarter: 2010Q2

REPORT INFORMATION
  Report Type: 
  Country: None (occurrence: None)
  Receive Date: 20100629
  Receipt Date: 20090114
  Transmission Date: 20101027
  Serious: Yes (Other)
  Sender: FDA-Public Use
  Company Number: US-PFIZER INC-2009155958

PATIENT
  Sex: Male
  Weight: 86.182 kg

DRUGS (3)
  1. VIAGRA [Suspect]
     Indication: ERECTILE DYSFUNCTION
     Dosage: 100 MG, UNK
     Dates: start: 20070101
  2. OMEPRAZOLE [Concomitant]
  3. MELOXICAM [Concomitant]

REACTIONS (4)
  - CATARACT [None]
  - DRY EYE [None]
  - EYE IRRITATION [None]
  - LACRIMATION INCREASED [None]
